FAERS Safety Report 24819992 (Version 1)
Quarter: 2025Q1

REPORT INFORMATION
  Report Type: Report from Study
  Country: US (occurrence: US)
  Receive Date: 20250108
  Receipt Date: 20250108
  Transmission Date: 20250409
  Serious: Yes (Life-Threatening, Hospitalization, Other)
  Sender: ALNYLAM PHARMACEUTICALS
  Company Number: US-ALNYLAM PHARMACEUTICALS, INC.-ALN-2024-004716

PATIENT

DRUGS (7)
  1. ONPATTRO [Suspect]
     Active Substance: PATISIRAN SODIUM
     Indication: Cardiac amyloidosis
     Dosage: 23.8 MILLIGRAM, Q3W
     Route: 042
     Dates: start: 20230706, end: 20230706
  2. ONPATTRO [Suspect]
     Active Substance: PATISIRAN SODIUM
     Dosage: 24.28 MILLIGRAM, Q3W
     Route: 042
     Dates: start: 20240627, end: 20240627
  3. FUROSCIX [Concomitant]
     Active Substance: FUROSEMIDE
     Indication: Lymphoedema
     Route: 058
     Dates: start: 20230717
  4. PREGABALIN [Concomitant]
     Active Substance: PREGABALIN
     Indication: Neuralgia
     Dosage: 100 MILLIGRAM, BID
     Route: 048
     Dates: start: 20240201
  5. CEPHALEXIN [Concomitant]
     Active Substance: CEPHALEXIN
     Indication: Cellulitis
     Dosage: 500 MILLIGRAM, QD
     Route: 048
     Dates: start: 20130419
  6. CEPHALEXIN [Concomitant]
     Active Substance: CEPHALEXIN
     Indication: Staphylococcal infection
  7. CEPHALEXIN [Concomitant]
     Active Substance: CEPHALEXIN
     Indication: Prophylaxis

REACTIONS (5)
  - Sepsis [Recovered/Resolved]
  - Wound infection [Recovering/Resolving]
  - Skin ulcer [Recovering/Resolving]
  - Muscle necrosis [Recovering/Resolving]
  - Wound [Unknown]

NARRATIVE: CASE EVENT DATE: 20240719
